FAERS Safety Report 23191616 (Version 3)
Quarter: 2024Q1

REPORT INFORMATION
  Report Type: Report from Study
  Country: US (occurrence: US)
  Receive Date: 20231116
  Receipt Date: 20240322
  Transmission Date: 20240409
  Serious: No
  Sender: FDA-Public Use
  Company Number: US-ALXN-A202309566

PATIENT
  Age: 47 Year
  Sex: Female

DRUGS (1)
  1. ULTOMIRIS [Suspect]
     Active Substance: RAVULIZUMAB-CWVZ
     Indication: Myasthenia gravis
     Dosage: UNK
     Route: 042

REACTIONS (29)
  - Immune system disorder [Recovered/Resolved]
  - Laryngitis [Unknown]
  - Cold sweat [Unknown]
  - Dysphonia [Unknown]
  - Illness [Recovered/Resolved]
  - Sinusitis [Unknown]
  - Body temperature increased [Unknown]
  - Muscular weakness [Unknown]
  - Blood pressure increased [Unknown]
  - Limb discomfort [Unknown]
  - Sciatica [Unknown]
  - Muscle tightness [Unknown]
  - Nerve injury [Unknown]
  - Muscle tension dysphonia [Recovered/Resolved]
  - Grip strength decreased [Unknown]
  - Cough [Recovered/Resolved]
  - Infusion site pain [Recovered/Resolved]
  - Nasopharyngitis [Unknown]
  - Myalgia [Unknown]
  - Upper respiratory tract infection [Unknown]
  - Neuralgia [Unknown]
  - Asthenia [Unknown]
  - Pyrexia [Recovered/Resolved]
  - Fatigue [Unknown]
  - Headache [Unknown]
  - Burning sensation [Unknown]
  - Intervertebral disc protrusion [Unknown]
  - Arthropod bite [Unknown]
  - Abscess [Unknown]

NARRATIVE: CASE EVENT DATE: 20230812
